FAERS Safety Report 15348323 (Version 3)
Quarter: 2018Q4

REPORT INFORMATION
  Report Type: Spontaneous
  Country: JP (occurrence: JP)
  Receive Date: 20180904
  Receipt Date: 20181001
  Transmission Date: 20190204
  Serious: Yes (Death, Hospitalization)
  Sender: FDA-Public Use
  Company Number: JP-JNJFOC-20180901531

PATIENT
  Age: 80 Year
  Sex: Female

DRUGS (1)
  1. REMINYL [Suspect]
     Active Substance: GALANTAMINE
     Indication: DEMENTIA ALZHEIMER^S TYPE
     Route: 048
     Dates: start: 201408

REACTIONS (3)
  - Affect lability [Recovered/Resolved]
  - Poriomania [Recovered/Resolved]
  - Marasmus [Fatal]

NARRATIVE: CASE EVENT DATE: 20150601
